FAERS Safety Report 8550251-X (Version None)
Quarter: 2012Q3

REPORT INFORMATION
  Report Type: 
  Country: None (occurrence: None)
  Receive Date: 20120730
  Receipt Date: 20120725
  Transmission Date: 20120928
  Serious: Yes (Other)
  Sender: FDA-Public Use
  Company Number: PHEH2012US014724

PATIENT
  Sex: Female

DRUGS (7)
  1. CELEXA [Concomitant]
  2. TRANXENE [Concomitant]
  3. CRESTOR [Concomitant]
  4. GILENYA [Suspect]
     Indication: MULTIPLE SCLEROSIS
     Dosage: 0.5 MG, QD
     Route: 048
     Dates: end: 20120701
  5. PROVIGIL [Concomitant]
  6. SPIRONOLACTONE [Concomitant]
  7. FOLIC ACID [Concomitant]

REACTIONS (2)
  - GAIT DISTURBANCE [None]
  - DYSARTHRIA [None]
